FAERS Safety Report 8612990-1 (Version None)
Quarter: 2012Q3

REPORT INFORMATION
  Report Type: 
  Country: None (occurrence: None)
  Receive Date: 20120822
  Receipt Date: 20120816
  Transmission Date: 20120928
  Serious: Yes (Other)
  Sender: FDA-Public Use
  Company Number: BR-PFIZER INC-2012200917

PATIENT
  Age: 55 Year
  Sex: Male
  Weight: 79 kg

DRUGS (4)
  1. LYRICA [Suspect]
     Indication: CERVICAL CORD COMPRESSION
     Dosage: 75 MG,  8X/DAY
     Route: 048
     Dates: start: 20070919
  2. VALIUM [Concomitant]
     Indication: HYPOTONIA
     Dosage: ONE TABLET ONCE DAILY
  3. LYRICA [Suspect]
     Indication: PAIN
  4. SIMVASTATIN [Concomitant]
     Indication: BLOOD CHOLESTEROL ABNORMAL
     Dosage: ONE TABLET ONCE DAILY

REACTIONS (3)
  - SPINAL CORD COMPRESSION [None]
  - INCORRECT DOSE ADMINISTERED [None]
  - CERVICAL SPINAL STENOSIS [None]
